FAERS Safety Report 9440822 (Version 1)
Quarter: 2013Q3

REPORT INFORMATION
  Report Type: Spontaneous
  Country: US (occurrence: US)
  Receive Date: 20130805
  Receipt Date: 20130805
  Transmission Date: 20140515
  Serious: Yes (Other)
  Sender: FDA-Public Use
  Company Number: US-BAYER-2013-092834

PATIENT
  Sex: Female

DRUGS (1)
  1. STIVARGA [Suspect]
     Dosage: UNK

REACTIONS (2)
  - Exposure via partner [None]
  - Rash [Recovered/Resolved]
